FAERS Safety Report 13228312 (Version 1)
Quarter: 2017Q1

REPORT INFORMATION
  Report Type: Spontaneous
  Country: US (occurrence: US)
  Receive Date: 20170213
  Receipt Date: 20170213
  Transmission Date: 20170428
  Serious: No
  Sender: FDA-Public Use
  Company Number: US-ROCHE-1837492

PATIENT
  Sex: Male
  Weight: 120.31 kg

DRUGS (1)
  1. XOLAIR [Suspect]
     Active Substance: OMALIZUMAB
     Indication: ASTHMA
     Route: 058
     Dates: start: 201604

REACTIONS (5)
  - Pyrexia [Unknown]
  - Arthralgia [Unknown]
  - Influenza like illness [Recovering/Resolving]
  - Vertigo [Unknown]
  - Nausea [Unknown]
